FAERS Safety Report 4553057-1 (Version None)
Quarter: 2005Q1

REPORT INFORMATION
  Report Type: 
  Country: None (occurrence: None)
  Receive Date: 20050114
  Receipt Date: 20050106
  Transmission Date: 20050727
  Serious: Yes (Other)
  Sender: FDA-Public Use
  Company Number: PHEH2005US00567

PATIENT
  Age: 57 Year
  Sex: Female

DRUGS (2)
  1. ZOMETA [Suspect]
     Indication: BREAST CANCER
     Dosage: 4MG ONCE A MONTH
     Dates: start: 20041223, end: 20041223
  2. ARIMIDEX [Concomitant]

REACTIONS (1)
  - DEAFNESS [None]
